FAERS Safety Report 5343299-X (Version None)
Quarter: 2007Q2

REPORT INFORMATION
  Report Type: 
  Country: None (occurrence: None)
  Receive Date: 20070502
  Receipt Date: 20060829
  Transmission Date: 20071010
  Serious: Yes (Other)
  Sender: FDA-Public Use
  Company Number: PHEH2006US11102

PATIENT
  Age: 59 Year
  Sex: Female
  Weight: 90.2 kg

DRUGS (7)
  1. LOTREL [Suspect]
     Indication: HYPERTENSION
     Dosage: 5/20 MG, BID, ORAL
     Route: 048
     Dates: start: 20010801, end: 20060825
  2. SINGULAIR [Concomitant]
  3. HYDROCHLOROTHIAZIDE [Concomitant]
  4. ADVAIR DISKUS 100/50 [Concomitant]
  5. CENESTIN [Concomitant]
  6. ALBUTEROL [Concomitant]
  7. ACIPHEX [Concomitant]

REACTIONS (1)
  - ANGIOEDEMA [None]
